FAERS Safety Report 5891139-2 (Version None)
Quarter: 2008Q3

REPORT INFORMATION
  Report Type: 
  Country: None (occurrence: None)
  Receive Date: 20080922
  Receipt Date: 20080908
  Transmission Date: 20090109
  Serious: No
  Sender: FDA-Public Use
  Company Number: US-BAYER-200826400NA

PATIENT
  Age: 35 Year
  Sex: Female
  Weight: 102 kg

DRUGS (1)
  1. YAZ [Suspect]
     Indication: CONTRACEPTION
     Route: 048
     Dates: start: 20080201

REACTIONS (4)
  - FEELING ABNORMAL [None]
  - IRRITABILITY [None]
  - MENSTRUATION DELAYED [None]
  - PRURITUS [None]
